FAERS Safety Report 11714697 (Version 1)
Quarter: 2015Q4

REPORT INFORMATION
  Report Type: Spontaneous
  Country: US (occurrence: US)
  Receive Date: 20151109
  Receipt Date: 20151109
  Transmission Date: 20160304
  Serious: No
  Sender: FDA-Public Use
  Company Number: US-ELI_LILLY_AND_COMPANY-US201511000557

PATIENT
  Sex: Female

DRUGS (1)
  1. PROZAC [Suspect]
     Active Substance: FLUOXETINE HYDROCHLORIDE
     Indication: DEPRESSION
     Dosage: UNK
     Route: 065
     Dates: start: 201405

REACTIONS (9)
  - Personality change [Unknown]
  - Lethargy [Unknown]
  - Apathy [Unknown]
  - Feeling abnormal [Unknown]
  - Emotional disorder [Unknown]
  - Libido decreased [Unknown]
  - Drug ineffective [Unknown]
  - Communication disorder [Unknown]
  - Depression [Unknown]
